FAERS Safety Report 21355367 (Version 1)
Quarter: 2022Q3

REPORT INFORMATION
  Report Type: Spontaneous
  Country: US (occurrence: None)
  Receive Date: 20220919
  Receipt Date: 20220919
  Transmission Date: 20221027
  Serious: Yes (Hospitalization)
  Sender: FDA-Public Use
  Company Number: None

PATIENT
  Sex: Male

DRUGS (1)
  1. VIGABATRIN [Suspect]
     Active Substance: VIGABATRIN
     Indication: Epilepsy
     Dosage: VIGABATRIN POWDER MIX 3 PACKETS IN 30ML WATER AND GIVE 30 ML VIA GTUBE 2 TIMES DAILY.?
     Route: 048
     Dates: start: 202206

REACTIONS (1)
  - Hospitalisation [None]
